FAERS Safety Report 8156345-5 (Version None)
Quarter: 2012Q1

REPORT INFORMATION
  Report Type: 
  Country: None (occurrence: None)
  Receive Date: 20120222
  Receipt Date: 20120215
  Transmission Date: 20120608
  Serious: No
  Sender: FDA-Public Use
  Company Number: US-PFIZER INC-2012042026

PATIENT

DRUGS (2)
  1. EFFEXOR XR [Suspect]
     Dosage: 75 MG
  2. VENLAFAXINE HCL [Suspect]
     Dosage: UNK

REACTIONS (2)
  - DRUG INEFFECTIVE [None]
  - FEAR [None]
